FAERS Safety Report 9606041 (Version 1)
Quarter: 2013Q4

REPORT INFORMATION
  Report Type: Spontaneous
  Country: US (occurrence: US)
  Receive Date: 20131008
  Receipt Date: 20131008
  Transmission Date: 20140711
  Serious: No
  Sender: FDA-Public Use
  Company Number: US-AMGEN-USASP2013039842

PATIENT
  Age: 75 Year
  Sex: Female

DRUGS (4)
  1. PROLIA [Suspect]
     Indication: OSTEOPOROSIS POSTMENOPAUSAL
  2. DICLOFENAC [Concomitant]
  3. NADOLOL [Concomitant]
  4. VITAMINS                           /00067501/ [Concomitant]

REACTIONS (3)
  - Bone disorder [Unknown]
  - Gait disturbance [Unknown]
  - Arthralgia [Recovering/Resolving]
